FAERS Safety Report 10377585 (Version 1)
Quarter: 2014Q3

REPORT INFORMATION
  Report Type: Spontaneous
  Country: US (occurrence: None)
  Receive Date: 20140811
  Receipt Date: 20140811
  Transmission Date: 20150326
  Serious: Yes (Hospitalization)
  Sender: FDA-Public Use
  Company Number: None

PATIENT
  Age: 67 Year
  Sex: Male
  Weight: 92 kg

DRUGS (1)
  1. METHOTREXATE [Suspect]
     Active Substance: METHOTREXATE
     Dates: end: 20140730

REACTIONS (4)
  - Muscular weakness [None]
  - Mental status changes [None]
  - Dysarthria [None]
  - Confusional state [None]

NARRATIVE: CASE EVENT DATE: 20140801
